FAERS Safety Report 9582327 (Version 1)
Quarter: 2013Q4

REPORT INFORMATION
  Report Type: Spontaneous
  Country: US (occurrence: US)
  Receive Date: 20131002
  Receipt Date: 20131002
  Transmission Date: 20140711
  Serious: No
  Sender: FDA-Public Use
  Company Number: US-AMGEN-USASP2013039834

PATIENT
  Age: 53 Year
  Sex: Male
  Weight: 106.58 kg

DRUGS (9)
  1. ENBREL [Suspect]
     Indication: PRODUCT USED FOR UNKNOWN INDICATION
     Dosage: 50 MG, 2 TIMES/WK
     Route: 058
  2. AMLODIPINE [Concomitant]
     Dosage: 2.5 MG, UNK
  3. CRESTOR [Concomitant]
     Dosage: 5 MG, UNK
  4. TRIAMTEREEN/HYDROCHLOOTTHIAZIDE [Concomitant]
     Dosage: 50-75 MG
  5. ASPIRIN [Concomitant]
     Dosage: 81 MG, UNK
  6. LEXAPRO [Concomitant]
     Dosage: 10 MG, UNK
  7. VITAMIN D3 [Concomitant]
     Dosage: 10000 UNIT, UNK
  8. FENOFIBRATE [Concomitant]
     Dosage: 130 MG, UNK
  9. CIALIS [Concomitant]
     Dosage: 2.5 MG, UNK

REACTIONS (1)
  - Injection site haemorrhage [Recovering/Resolving]
